FAERS Safety Report 9514290 (Version 1)
Quarter: 2013Q3

REPORT INFORMATION
  Report Type: Spontaneous
  Country: US (occurrence: US)
  Receive Date: 20130910
  Receipt Date: 20130910
  Transmission Date: 20140515
  Serious: No
  Sender: FDA-Public Use
  Company Number: US-B.I. PHARMACEUTICALS,INC./RIDGEFIELD-2013-BI-26949BP

PATIENT
  Age: 74 Year
  Sex: Female

DRUGS (1)
  1. JENTADUETO [Suspect]
     Indication: BLOOD GLUCOSE INCREASED
     Dosage: DOSE PER APPLICATION: 2.5 MG / 1000 MG; DAILY DOSE: 5 MG / 2000 MG
     Route: 048
     Dates: end: 201308

REACTIONS (2)
  - Dry skin [Recovered/Resolved]
  - Pruritus [Recovered/Resolved]
